FAERS Safety Report 18304634 (Version 2)
Quarter: 2020Q4

REPORT INFORMATION
  Report Type: Spontaneous
  Country: BR (occurrence: BR)
  Receive Date: 20200924
  Receipt Date: 20201005
  Transmission Date: 20210113
  Serious: Yes (Other)
  Sender: FDA-Public Use
  Company Number: BR-AMGEN-BRASP2020140552

PATIENT
  Age: 54 Year
  Sex: Female

DRUGS (1)
  1. PASURTA [Suspect]
     Active Substance: ERENUMAB
     Indication: MIGRAINE
     Dosage: UNK UNK, QMO (1 INJECTION OF 70MG (STARTED 2 MONTHS AGO))
     Route: 058

REACTIONS (1)
  - Alopecia [Not Recovered/Not Resolved]
